FAERS Safety Report 4732241-8 (Version None)
Quarter: 2005Q3

REPORT INFORMATION
  Report Type: 
  Country: None (occurrence: None)
  Receive Date: 20050725
  Receipt Date: 20040720
  Transmission Date: 20060218
  Serious: Yes (Death)
  Sender: FDA-Public Use
  Company Number: USA-2004-0016084

PATIENT
  Age: 39 Year
  Sex: Female
  Weight: 51.7 kg

DRUGS (9)
  1. MORPHINE SULFATE [Suspect]
  2. ETHANOL (ETHANOL) [Suspect]
  3. ACETAMINOPHEN [Suspect]
  4. NICOTINE [Suspect]
  5. SERTRALINE (SERTRALINE) [Suspect]
  6. METOCLOPRAMIDE [Suspect]
  7. OXAZEPAM [Suspect]
  8. DIAZEPAM [Suspect]
  9. TEMAZEPAM [Suspect]

REACTIONS (1)
  - ACCIDENTAL OVERDOSE [None]
